FAERS Safety Report 5381923-6 (Version None)
Quarter: 2007Q3

REPORT INFORMATION
  Report Type: 
  Country: None (occurrence: None)
  Receive Date: 20070709
  Receipt Date: 20070702
  Transmission Date: 20080115
  Serious: Yes (Other)
  Sender: FDA-Public Use
  Company Number: JP-AVENTIS-200715924GDDC

PATIENT
  Age: 76 Year
  Sex: Male
  Weight: 86.18 kg

DRUGS (10)
  1. LEVAQUIN [Suspect]
     Indication: INFECTION
     Dosage: DOSE: UNK
     Route: 048
     Dates: start: 20030101, end: 20030101
  2. FLAGYL [Suspect]
     Indication: INFECTION
     Dosage: DOSE: UNK
  3. GABITRIL [Suspect]
     Dosage: DOSE: UNK
  4. LISINOPRIL [Concomitant]
     Dosage: DOSE: UNK
  5. ASPIRIN [Concomitant]
     Dosage: DOSE: UNK
  6. TIAZAC                             /00489702/ [Concomitant]
     Dosage: DOSE: UNK
  7. ZANTAC [Concomitant]
     Dosage: DOSE: UNK
  8. MULTIVITAMIN [Concomitant]
     Dosage: DOSE: UNK
  9. GLUCOSAMINE [Concomitant]
     Dosage: DOSE: UNK
  10. ZOCOR [Concomitant]
     Dosage: DOSE: UNK

REACTIONS (2)
  - AMNESIA [None]
  - CONFUSIONAL STATE [None]
